FAERS Safety Report 6233079-5 (Version None)
Quarter: 2009Q2

REPORT INFORMATION
  Report Type: 
  Country: None (occurrence: None)
  Receive Date: 20090612
  Receipt Date: 20090601
  Transmission Date: 20091009
  Serious: Yes (Death)
  Sender: FDA-Public Use
  Company Number: 2007-152786-NL

PATIENT
  Age: 37 Year
  Sex: Female
  Weight: 68 kg

DRUGS (1)
  1. NUVARING [Suspect]
     Indication: CONTRACEPTION
     Dosage: 3 WEEKS INSERTED/ ONE WEEK OUT
     Dates: start: 20050101, end: 20060502

REACTIONS (17)
  - AGITATION [None]
  - ANXIETY [None]
  - ASTHENIA [None]
  - BLOOD GLUCOSE INCREASED [None]
  - BRADYCARDIA [None]
  - CARDIAC ARREST [None]
  - CONFUSIONAL STATE [None]
  - CONVULSION [None]
  - FACE INJURY [None]
  - FALL [None]
  - HEART RATE INCREASED [None]
  - HYPERHIDROSIS [None]
  - MOBILITY DECREASED [None]
  - MYOCARDITIS [None]
  - NEPHROSCLEROSIS [None]
  - PULMONARY EMBOLISM [None]
  - TACHYPNOEA [None]
